FAERS Safety Report 12467837 (Version 3)
Quarter: 2016Q3

REPORT INFORMATION
  Report Type: Spontaneous
  Country: JP (occurrence: JP)
  Receive Date: 20160615
  Receipt Date: 20160808
  Transmission Date: 20161109
  Serious: Yes (Life-Threatening, Hospitalization)
  Sender: FDA-Public Use
  Company Number: ALJP2016JP000856

PATIENT
  Age: 83 Year
  Sex: Female
  Weight: 50 kg

DRUGS (11)
  1. GATIFLO [Concomitant]
     Active Substance: GATIFLOXACIN
     Indication: PREOPERATIVE CARE
     Dosage: 1 GTT, 5QD
     Route: 047
     Dates: start: 20160531, end: 20160604
  2. THEO-DUR [Concomitant]
     Active Substance: THEOPHYLLINE ANHYDROUS
     Indication: ASTHMA
     Dosage: 1 DF, QD
     Route: 048
  3. CRAVIT [Concomitant]
     Active Substance: LEVOFLOXACIN
     Indication: PREOPERATIVE CARE
     Dosage: 1 DF, QD
     Route: 048
     Dates: start: 20160603, end: 20160607
  4. PREDNISOLONE. [Concomitant]
     Active Substance: PREDNISOLONE
     Indication: ASTHMA
     Dosage: 1 DF, QD
     Route: 048
  5. AZORGA COMBINATION OPHTHALMIC SUSPENSION [Suspect]
     Active Substance: BRINZOLAMIDE\TIMOLOL MALEATE
     Indication: INTRAOCULAR PRESSURE INCREASED
     Dosage: 1 GTT, QD
     Route: 047
     Dates: start: 20160604, end: 20160604
  6. SELBEX [Concomitant]
     Active Substance: TEPRENONE
     Indication: PROPHYLAXIS AGAINST GASTROINTESTINAL ULCER
     Dosage: 1 DF, QD
     Route: 048
  7. RINDERON V [Concomitant]
     Active Substance: BETAMETHASONE VALERATE
     Indication: POSTOPERATIVE CARE
     Dosage: 1 GTT, QID
     Route: 047
     Dates: start: 20160604
  8. VEGAMOX [Concomitant]
     Active Substance: MOXIFLOXACIN HYDROCHLORIDE
     Indication: POSTOPERATIVE CARE
     Dosage: 1 GTT, QID
     Route: 047
     Dates: start: 20160604
  9. MUCODYNE [Concomitant]
     Active Substance: CARBOCYSTEINE
     Indication: ASTHMA
     Dosage: 1 DF, QD
     Route: 048
  10. GASTER [Concomitant]
     Active Substance: FAMOTIDINE
     Indication: PROPHYLAXIS AGAINST GASTROINTESTINAL ULCER
     Dosage: 1 DF, QD
     Route: 048
  11. HOKUNALIN [Concomitant]
     Active Substance: TULOBUTEROL
     Indication: ASTHMA
     Dosage: 1 DF, QD
     Route: 062

REACTIONS (3)
  - Contraindicated product administered [Unknown]
  - Asthma [Recovered/Resolved]
  - Blood pressure increased [Recovered/Resolved]

NARRATIVE: CASE EVENT DATE: 20160604
